FAERS Safety Report 5011340-X (Version None)
Quarter: 2006Q2

REPORT INFORMATION
  Report Type: 
  Country: None (occurrence: None)
  Receive Date: 20060524
  Receipt Date: 20060512
  Transmission Date: 20061013
  Serious: Yes (Hospitalization)
  Sender: FDA-Public Use
  Company Number: 2006PV014111

PATIENT
  Age: 52 Year
  Sex: Male

DRUGS (13)
  1. BYETTA [Suspect]
     Indication: DIABETES MELLITUS NON-INSULIN-DEPENDENT
     Dosage: SEE IMAGE
     Route: 058
     Dates: start: 20051001, end: 20060101
  2. BYETTA [Suspect]
     Indication: DIABETES MELLITUS NON-INSULIN-DEPENDENT
     Dosage: SEE IMAGE
     Route: 058
     Dates: start: 20060101
  3. METFORMIN [Concomitant]
  4. PLAVIX [Concomitant]
  5. ATENOLOL [Concomitant]
  6. AVAPRO [Concomitant]
  7. ADVICOR [Concomitant]
  8. VALIUM [Concomitant]
  9. WELLBUTRIN [Concomitant]
  10. PLETAL [Concomitant]
  11. ETODOLAC [Concomitant]
  12. ASPIRIN [Concomitant]
  13. NEXIUM [Concomitant]

REACTIONS (10)
  - CONDITION AGGRAVATED [None]
  - DYSPNOEA [None]
  - INJECTION SITE HAEMORRHAGE [None]
  - MEDICAL DEVICE COMPLICATION [None]
  - NAUSEA [None]
  - PANIC ATTACK [None]
  - TACHYARRHYTHMIA [None]
  - TACHYCARDIA [None]
  - VOMITING [None]
  - WEIGHT DECREASED [None]
